FAERS Safety Report 6105424-2 (Version None)
Quarter: 2009Q1

REPORT INFORMATION
  Report Type: 
  Country: None (occurrence: None)
  Receive Date: 20090306
  Receipt Date: 20090224
  Transmission Date: 20090719
  Serious: Yes (Death, Hospitalization)
  Sender: FDA-Public Use
  Company Number: PL-PFIZER INC-2008059483

PATIENT

DRUGS (10)
  1. BLINDED *PLACEBO [Suspect]
     Indication: COLORECTAL CANCER
     Dosage: UNK
     Dates: start: 20080703, end: 20080715
  2. BLINDED SUNITINIB MALATE [Suspect]
     Indication: COLORECTAL CANCER
     Dosage: UNK
     Dates: start: 20080703, end: 20080715
  3. IRINOTECAN HCL [Suspect]
     Indication: COLORECTAL CANCER
     Dosage: 367 MG, EVERY 2 WEEKS
     Dates: start: 20080703
  4. FLUOROURACIL [Suspect]
     Indication: COLORECTAL CANCER
     Dosage: 816 MG, EVERY 2 WEEKS
     Dates: start: 20080703
  5. FLUOROURACIL [Suspect]
     Dosage: 4894 MG, EVERY 2 WEEKS
     Dates: start: 20080703, end: 20080705
  6. FOLINIC ACID [Suspect]
     Indication: COLORECTAL CANCER
     Dosage: 816 MG SOLUTION
     Dates: start: 20080703
  7. FENTANYL-100 [Concomitant]
     Indication: PAIN
     Dosage: 50 UG CONTINUOSLY
  8. ONDANSETRON [Concomitant]
     Indication: VOMITING
     Dosage: 8 MG, 1 EVERY 8 HOURS
     Dates: start: 20080703, end: 20080705
  9. METOCLOPRAMIDE [Concomitant]
     Indication: VOMITING
     Dosage: 20 MG, 1 EVERY 8 HOURS
     Dates: start: 20080703, end: 20080705
  10. ATROPINE [Concomitant]
     Indication: PREMEDICATION
     Dosage: 0.5 MG ONCE
     Dates: start: 20080703, end: 20080703

REACTIONS (1)
  - SEPSIS [None]
